FAERS Safety Report 11692416 (Version 1)
Quarter: 2015Q4

REPORT INFORMATION
  Report Type: Report from Study
  Country: US (occurrence: US)
  Receive Date: 20151103
  Receipt Date: 20151103
  Transmission Date: 20160304
  Serious: Yes (Hospitalization, Other)
  Sender: FDA-Public Use
  Company Number: US-ROCHE-1316034

PATIENT
  Age: 78 Year
  Sex: Male
  Weight: 93.98 kg

DRUGS (14)
  1. AMLODIPINE BESYLATE. [Concomitant]
     Active Substance: AMLODIPINE BESYLATE
     Dosage: INDICTAIONS:CONTROL SWELLING AND CONTROL BLOOD PRESSURE
     Route: 048
  2. GENGRAF [Concomitant]
     Active Substance: CYCLOSPORINE
     Indication: HEART TRANSPLANT
     Dosage: 3 IN AM 3 IN PM
     Route: 065
  3. ERIVEDGE [Suspect]
     Active Substance: VISMODEGIB
     Route: 048
     Dates: start: 20130901, end: 20150727
  4. GENGRAF [Concomitant]
     Active Substance: CYCLOSPORINE
     Route: 065
  5. TOPROL XL [Concomitant]
     Active Substance: METOPROLOL SUCCINATE
     Route: 046
  6. DOXAZOSIN [Concomitant]
     Active Substance: DOXAZOSIN\DOXAZOSIN MESYLATE
     Route: 048
  7. FOLIC ACID. [Concomitant]
     Active Substance: FOLIC ACID
     Route: 048
  8. SYNTHROID [Concomitant]
     Active Substance: LEVOTHYROXINE SODIUM
     Dosage: INDICATION:THYROID
     Route: 065
  9. FISH OIL [Concomitant]
     Active Substance: FISH OIL
     Route: 048
  10. PRAVASTATIN [Concomitant]
     Active Substance: PRAVASTATIN\PRAVASTATIN SODIUM
     Route: 065
  11. VIAGRA [Concomitant]
     Active Substance: SILDENAFIL CITRATE
     Route: 048
  12. ERIVEDGE [Suspect]
     Active Substance: VISMODEGIB
     Indication: BASAL CELL CARCINOMA
     Route: 048
     Dates: start: 2012
  13. OMEPRAZOLE. [Concomitant]
     Active Substance: OMEPRAZOLE
     Route: 065
  14. PROCRIT [Concomitant]
     Active Substance: ERYTHROPOIETIN
     Dosage: INDICATION:PROMOTES RBC GROWTH
     Route: 065

REACTIONS (9)
  - Squamous cell carcinoma [Not Recovered/Not Resolved]
  - Malignant neoplasm of eye [Not Recovered/Not Resolved]
  - Muscle spasms [Recovered/Resolved]
  - Drug dose omission [Unknown]
  - Asthenia [Unknown]
  - Dry mouth [Recovering/Resolving]
  - Alopecia [Recovering/Resolving]
  - Fatigue [Recovering/Resolving]
  - Gastrointestinal haemorrhage [Unknown]

NARRATIVE: CASE EVENT DATE: 201306
